FAERS Safety Report 9537456 (Version 2)
Quarter: 2014Q1

REPORT INFORMATION
  Report Type: Spontaneous
  Country: BR (occurrence: BR)
  Receive Date: 20130919
  Receipt Date: 20140313
  Transmission Date: 20141002
  Serious: Yes (Hospitalization, Other)
  Sender: FDA-Public Use
  Company Number: BR-JNJFOC-20130908271

PATIENT
  Age: 53 Year
  Sex: Female
  Weight: 64 kg

DRUGS (8)
  1. SIMPONI [Suspect]
     Indication: RHEUMATOID ARTHRITIS
     Route: 058
     Dates: start: 20130910
  2. SIMPONI [Suspect]
     Indication: RHEUMATOID ARTHRITIS
     Route: 058
     Dates: start: 20130710
  3. OMEPRAZOLE [Concomitant]
     Indication: GASTRIC DISORDER
     Route: 065
  4. ATENOLOL [Concomitant]
     Indication: HYPERTENSION
     Route: 065
  5. SEDILAX [Concomitant]
     Indication: PAIN
     Route: 065
  6. VENLAFAXINA MEPHA [Concomitant]
     Indication: NERVOUSNESS
     Route: 065
  7. SODIUM ALENDRONATE [Concomitant]
     Indication: BONE DISORDER
     Route: 065
  8. METHOTREXATE [Concomitant]
     Indication: RHEUMATOID ARTHRITIS
     Route: 065

REACTIONS (10)
  - Vomiting [Recovered/Resolved]
  - Nausea [Not Recovered/Not Resolved]
  - Abdominal pain upper [Not Recovered/Not Resolved]
  - Tooth extraction [Recovered/Resolved]
  - Oral infection [Recovering/Resolving]
  - Swelling [Recovered/Resolved]
  - Swelling face [Recovered/Resolved]
  - Application site pain [Recovered/Resolved]
  - Haematoma [Unknown]
  - Pain in extremity [Unknown]
